FAERS Safety Report 15372269 (Version 10)
Quarter: 2020Q1

REPORT INFORMATION
  Report Type: Spontaneous
  Country: US (occurrence: US)
  Receive Date: 20180911
  Receipt Date: 20200227
  Transmission Date: 20200409
  Serious: No
  Sender: FDA-Public Use
  Company Number: US-SA-2018SA254038

PATIENT
  Age: 24 Year
  Sex: Male

DRUGS (4)
  1. FABRAZYME [Suspect]
     Active Substance: AGALSIDASE BETA
     Dosage: 55 MG, QOW
     Route: 041
  2. FABRAZYME [Suspect]
     Active Substance: AGALSIDASE BETA
     Indication: FABRY^S DISEASE
     Dosage: 35 MG, QOW
     Route: 041
     Dates: start: 20140715, end: 2018
  3. FABRAZYME [Suspect]
     Active Substance: AGALSIDASE BETA
     Indication: LIPIDOSIS
     Dosage: 20 MG, QOW
     Route: 041
     Dates: start: 20140714, end: 2018
  4. FABRAZYME [Suspect]
     Active Substance: AGALSIDASE BETA
     Indication: NEUROPATHY PERIPHERAL
     Dosage: 55 MG, QOW
     Route: 041
     Dates: start: 2018, end: 2018

REACTIONS (2)
  - Fatigue [Recovered/Resolved]
  - Product dose omission [Unknown]

NARRATIVE: CASE EVENT DATE: 20180827
